FAERS Safety Report 11751949 (Version 3)
Quarter: 2018Q2

REPORT INFORMATION
  Report Type: Spontaneous
  Country: US (occurrence: US)
  Receive Date: 20151118
  Receipt Date: 20180425
  Transmission Date: 20180711
  Serious: Yes (Hospitalization, Other)
  Sender: FDA-Public Use
  Company Number: US-DSJP-DSU-2015-118402

PATIENT

DRUGS (4)
  1. PROTONIX [Concomitant]
     Active Substance: PANTOPRAZOLE SODIUM
     Indication: PRODUCT USED FOR UNKNOWN INDICATION
     Dosage: 40 MG, BID
  2. LASIX [Concomitant]
     Active Substance: FUROSEMIDE
     Indication: PRODUCT USED FOR UNKNOWN INDICATION
     Dosage: 20 MG, PRN
     Dates: start: 201311
  3. BENICAR [Suspect]
     Active Substance: OLMESARTAN MEDOXOMIL
     Indication: HYPERTENSION
     Dosage: 20 MG, QD
     Dates: start: 20080318, end: 201407
  4. ASPIRIN. [Concomitant]
     Active Substance: ASPIRIN
     Indication: PRODUCT USED FOR UNKNOWN INDICATION
     Dosage: 81 MG, QD

REACTIONS (19)
  - Intestinal perforation [Unknown]
  - Normocytic anaemia [Unknown]
  - Polyp [Unknown]
  - Fall [Unknown]
  - Coeliac disease [Recovered/Resolved]
  - Sprue-like enteropathy [Recovering/Resolving]
  - Sensory loss [Unknown]
  - Haematochezia [Unknown]
  - Diverticulum [Unknown]
  - Constipation [Unknown]
  - Pain [Unknown]
  - Gastrooesophageal reflux disease [Unknown]
  - Muscular weakness [Unknown]
  - Haemorrhoid operation [Recovered/Resolved]
  - Hernia hiatus repair [Unknown]
  - Hypotension [Unknown]
  - Anal incontinence [Unknown]
  - Hepatic function abnormal [Recovered/Resolved]
  - Diverticulitis [Unknown]

NARRATIVE: CASE EVENT DATE: 2012
